FAERS Safety Report 18006544 (Version 1)
Quarter: 2020Q3

REPORT INFORMATION
  Report Type: Spontaneous
  Country: US (occurrence: US)
  Receive Date: 20200709
  Receipt Date: 20200709
  Transmission Date: 20201103
  Serious: No
  Sender: FDA-Public Use
  Company Number: None

PATIENT

DRUGS (2)
  1. INSULIN ASPART PROTAMINE AND INSULIN ASPART [Suspect]
     Active Substance: INSULIN ASPART
  2. NOVOLOG MIX 70/30 [Suspect]
     Active Substance: INSULIN ASPART

REACTIONS (3)
  - Product selection error [None]
  - Physical product label issue [None]
  - Product label issue [None]
